FAERS Safety Report 6233222-8 (Version None)
Quarter: 2009Q2

REPORT INFORMATION
  Report Type: 
  Country: None (occurrence: None)
  Receive Date: 20090617
  Receipt Date: 20090609
  Transmission Date: 20091009
  Serious: Yes (Other)
  Sender: FDA-Public Use
  Company Number: PHEH2009US01561

PATIENT
  Sex: Female
  Weight: 61.224 kg

DRUGS (10)
  1. RECLAST [Suspect]
     Indication: OSTEOPOROSIS
     Dosage: X1
     Route: 042
     Dates: start: 20081213
  2. RECLAST [Suspect]
     Indication: OSTEOPENIA
  3. MULTI-VITAMINS [Concomitant]
  4. CITRACAL [Concomitant]
  5. VITAMIN D [Concomitant]
  6. PREVACID [Concomitant]
     Indication: GASTROOESOPHAGEAL REFLUX DISEASE
     Dosage: 30 MG, QD (VAIOUS PDI)
     Route: 048
  7. ZOLOFT [Concomitant]
     Indication: DEPRESSION
     Dosage: 100 MG, QD
     Route: 048
     Dates: start: 20021001
  8. TRICOR [Concomitant]
     Indication: HYPERLIPIDAEMIA
     Dosage: 145 MG, QD
     Route: 048
     Dates: start: 20071101
  9. ZETIA [Concomitant]
     Indication: HYPERLIPIDAEMIA
     Dosage: 10 MG, QD
     Route: 048
     Dates: start: 20080301, end: 20081201
  10. CARAFATE [Concomitant]

REACTIONS (11)
  - ABDOMINAL PAIN UPPER [None]
  - ANAEMIA [None]
  - BLOOD CALCIUM INCREASED [None]
  - BLOOD CREATININE DECREASED [None]
  - BLOOD PARATHYROID HORMONE INCREASED [None]
  - COUGH [None]
  - GASTRIC POLYPS [None]
  - LOW DENSITY LIPOPROTEIN INCREASED [None]
  - MUSCULOSKELETAL PAIN [None]
  - RED BLOOD CELL SEDIMENTATION RATE INCREASED [None]
  - UPPER RESPIRATORY TRACT INFECTION [None]
